FAERS Safety Report 18336115 (Version 1)
Quarter: 2020Q4

REPORT INFORMATION
  Report Type: Spontaneous
  Country: SE (occurrence: SE)
  Receive Date: 20201001
  Receipt Date: 20201001
  Transmission Date: 20210113
  Serious: Yes (Death)
  Sender: FDA-Public Use
  Company Number: SE-MYLANLABS-2020M1082322

PATIENT
  Age: 85 Year
  Sex: Female

DRUGS (14)
  1. OMEPRAZOLE. [Concomitant]
     Active Substance: OMEPRAZOLE
     Dosage: 20 MILLIGRAM, QD
     Dates: start: 20191125
  2. HALDOL [Concomitant]
     Active Substance: HALOPERIDOL
     Dosage: VB
     Dates: start: 20200507
  3. FOLIC ACID. [Concomitant]
     Active Substance: FOLIC ACID
     Dosage: 5 MILLIGRAM, QD
     Dates: start: 20200319
  4. ALENDRONIC ACID [Concomitant]
     Active Substance: ALENDRONIC ACID
     Dosage: 70 MILLIGRAM, QW
     Dates: start: 20191125
  5. KALCIPOS-D [Concomitant]
     Active Substance: CALCIUM CARBONATE\CHOLECALCIFEROL
     Dosage: STYRKA 500MG/500IE
     Dates: start: 20200319
  6. DUPHALAC [Concomitant]
     Active Substance: LACTULOSE
     Dosage: VB
     Dates: start: 20191112
  7. BETOLVIDON [Concomitant]
     Active Substance: CYANOCOBALAMIN
     Dosage: 1 MILLIGRAM, QD
     Dates: start: 20191125
  8. LOPERAMIDE [Concomitant]
     Active Substance: LOPERAMIDE
     Dosage: VB
     Dates: start: 20191125
  9. OXASCAND [Concomitant]
     Active Substance: OXAZEPAM
     Dosage: VB
     Dates: start: 20200507
  10. RISPERIDONE. [Suspect]
     Active Substance: RISPERIDONE
     Indication: ANXIETY
     Dosage: 2 ST KL 08 1 ST KL 20
     Dates: start: 20200319
  11. OXYNORM [Concomitant]
     Active Substance: OXYCODONE HYDROCHLORIDE
     Dosage: VB
     Dates: start: 20191112
  12. ZOPICLONE [Concomitant]
     Active Substance: ZOPICLONE
     Dosage: 7.5 MILLIGRAM, QD
     Dates: start: 20200325
  13. IPREN [Concomitant]
     Active Substance: IBUPROFEN
     Dosage: VB
     Dates: start: 20191125
  14. CILAXORAL [Concomitant]
     Active Substance: SODIUM PICOSULFATE
     Dosage: VB (DROPPAR)
     Dates: start: 20191125

REACTIONS (1)
  - Pancreatitis acute [Fatal]

NARRATIVE: CASE EVENT DATE: 202008
